FAERS Safety Report 18488437 (Version 1)
Quarter: 2020Q4

REPORT INFORMATION
  Report Type: Spontaneous
  Country: FR (occurrence: FR)
  Receive Date: 20201110
  Receipt Date: 20201110
  Transmission Date: 20210114
  Serious: Yes (Death, Other)
  Sender: FDA-Public Use
  Company Number: FR-INDICUS PHARMA-000728

PATIENT
  Age: 35 Year
  Sex: Female

DRUGS (6)
  1. ATENOLOL/ATENOLOL HYDROCHLORIDE [Concomitant]
     Active Substance: ATENOLOL HYDROCHLORIDE
  2. MIRTAZAPINE. [Concomitant]
     Active Substance: MIRTAZAPINE
  3. METFORMIN [Suspect]
     Active Substance: METFORMIN HYDROCHLORIDE
     Indication: DIABETES MELLITUS
  4. PARACETAMOL [Concomitant]
     Active Substance: ACETAMINOPHEN
  5. RAMIPRIL. [Concomitant]
     Active Substance: RAMIPRIL
  6. INSULIN DETEMIR [Concomitant]
     Active Substance: INSULIN DETEMIR
     Indication: DIABETES MELLITUS
     Dosage: (100 UNITS/ML), EXTENDED-RELEASE

REACTIONS (7)
  - Visceral congestion [Fatal]
  - Hepatic steatosis [Fatal]
  - Cyanosis [Fatal]
  - Pulmonary oedema [Fatal]
  - Overdose [Fatal]
  - Toxicity to various agents [Fatal]
  - Asphyxia [Fatal]
